FAERS Safety Report 7772225-9 (Version None)
Quarter: 2011Q3

REPORT INFORMATION
  Report Type: 
  Country: None (occurrence: None)
  Receive Date: 20110922
  Receipt Date: 20100105
  Transmission Date: 20111222
  Serious: No
  Sender: FDA-Public Use
  Company Number: US-ASTRAZENECA-2009UW15871

PATIENT
  Age: 56 Year
  Sex: Male
  Weight: 78 kg

DRUGS (10)
  1. PAXIL [Concomitant]
     Route: 048
     Dates: start: 20000323
  2. PROZAC [Concomitant]
  3. DEPAKOTE [Concomitant]
     Route: 048
     Dates: start: 20000323
  4. SEROQUEL [Suspect]
     Indication: SCHIZOPHRENIA
     Route: 048
     Dates: start: 20000323
  5. SEROQUEL [Suspect]
     Dosage: 200-800 MG
     Route: 048
     Dates: start: 20070110, end: 20091006
  6. SEROQUEL [Suspect]
     Dosage: 200-800 MG
     Route: 048
     Dates: start: 20070110, end: 20091006
  7. RISPERDAL [Concomitant]
     Dates: start: 20070101
  8. TRAZODONE HYDROCHLORIDE [Concomitant]
  9. SEROQUEL [Suspect]
     Indication: HALLUCINATION, AUDITORY
     Route: 048
     Dates: start: 20000323
  10. VALIUM [Concomitant]

REACTIONS (4)
  - OBESITY [None]
  - DIABETES MELLITUS INADEQUATE CONTROL [None]
  - TYPE 2 DIABETES MELLITUS [None]
  - BLOOD CHOLESTEROL INCREASED [None]
